FAERS Safety Report 19308703 (Version 1)
Quarter: 2021Q2

REPORT INFORMATION
  Report Type: Spontaneous
  Country: US (occurrence: US)
  Receive Date: 20210526
  Receipt Date: 20210526
  Transmission Date: 20210717
  Serious: Yes (Death, Other)
  Sender: FDA-Public Use
  Company Number: US-BRISTOL-MYERS SQUIBB COMPANY-BMS-2021-049316

PATIENT
  Age: 92 Year
  Sex: Female

DRUGS (1)
  1. ELIQUIS [Suspect]
     Active Substance: APIXABAN
     Indication: PULMONARY HYPERTENSION
     Dosage: 2.5 MILLIGRAM, BID
     Route: 048
     Dates: start: 2018

REACTIONS (3)
  - Intentional product use issue [Unknown]
  - Cardiac failure congestive [Fatal]
  - Renal failure [Fatal]

NARRATIVE: CASE EVENT DATE: 20210514
